FAERS Safety Report 21075419 (Version 1)
Quarter: 2022Q3

REPORT INFORMATION
  Report Type: Spontaneous
  Country: US (occurrence: None)
  Receive Date: 20220712
  Receipt Date: 20220712
  Transmission Date: 20221027
  Serious: Yes (Life-Threatening, Hospitalization)
  Sender: FDA-Public Use
  Company Number: None

PATIENT
  Age: 65 Year
  Sex: Male

DRUGS (2)
  1. ALBUMIN HUMAN [Suspect]
     Active Substance: ALBUMIN HUMAN
  2. LORAZEPAM [Suspect]
     Active Substance: LORAZEPAM

REACTIONS (5)
  - Swelling face [None]
  - Dysarthria [None]
  - Agitation [None]
  - Seizure like phenomena [None]
  - Sedation [None]

NARRATIVE: CASE EVENT DATE: 20211018
